FAERS Safety Report 24786778 (Version 2)
Quarter: 2025Q1

REPORT INFORMATION
  Report Type: Spontaneous
  Country: CA (occurrence: CA)
  Receive Date: 20241230
  Receipt Date: 20250127
  Transmission Date: 20250409
  Serious: Yes (Death, Life-Threatening, Hospitalization, Disabling, Congenital Anomaly, Other)
  Sender: Haleon PLC
  Company Number: CA-HALEON-2218725

PATIENT
  Age: 40 Year
  Sex: Female
  Weight: 96 kg

DRUGS (211)
  1. DICLOFENAC SODIUM [Suspect]
     Active Substance: DICLOFENAC SODIUM
     Indication: Product used for unknown indication
     Route: 065
  2. HYDROCORTISONE SODIUM SUCCINATE [Suspect]
     Active Substance: HYDROCORTISONE SODIUM SUCCINATE
     Indication: Rheumatoid arthritis
     Route: 058
  3. TUMS ULTRA [Suspect]
     Active Substance: CALCIUM CARBONATE
     Indication: Product used for unknown indication
     Route: 065
  4. TUMS ULTRA [Suspect]
     Active Substance: CALCIUM CARBONATE
     Route: 065
  5. ACETAMINOPHEN [Suspect]
     Active Substance: ACETAMINOPHEN
     Indication: Rheumatoid arthritis
     Route: 065
  6. ACETAMINOPHEN [Suspect]
     Active Substance: ACETAMINOPHEN
     Route: 065
  7. VITAMIN C [Suspect]
     Active Substance: ASCORBIC ACID
     Indication: Product used for unknown indication
     Route: 065
  8. HYDROCORTISONE [Suspect]
     Active Substance: HYDROCORTISONE
     Indication: Rheumatoid arthritis
     Route: 065
  9. HYDROCORTISONE [Suspect]
     Active Substance: HYDROCORTISONE
     Route: 058
  10. ACTEMRA [Suspect]
     Active Substance: TOCILIZUMAB
     Indication: Rheumatoid arthritis
     Route: 058
  11. ACTEMRA [Suspect]
     Active Substance: TOCILIZUMAB
     Route: 058
  12. ACTEMRA [Suspect]
     Active Substance: TOCILIZUMAB
     Route: 065
  13. ACTEMRA [Suspect]
     Active Substance: TOCILIZUMAB
     Route: 040
  14. ACTEMRA [Suspect]
     Active Substance: TOCILIZUMAB
     Route: 040
  15. ACTEMRA [Suspect]
     Active Substance: TOCILIZUMAB
     Route: 040
  16. ACTEMRA [Suspect]
     Active Substance: TOCILIZUMAB
     Route: 040
  17. ACTEMRA [Suspect]
     Active Substance: TOCILIZUMAB
     Route: 058
  18. ACTEMRA [Suspect]
     Active Substance: TOCILIZUMAB
     Route: 065
  19. ACTEMRA [Suspect]
     Active Substance: TOCILIZUMAB
     Route: 040
  20. ACTEMRA [Suspect]
     Active Substance: TOCILIZUMAB
     Route: 058
  21. ACTEMRA [Suspect]
     Active Substance: TOCILIZUMAB
     Route: 040
  22. FOLIC ACID [Suspect]
     Active Substance: FOLIC ACID
     Indication: Rheumatoid arthritis
     Route: 048
  23. FOLIC ACID [Suspect]
     Active Substance: FOLIC ACID
     Route: 048
  24. FOLIC ACID [Suspect]
     Active Substance: FOLIC ACID
     Route: 065
  25. FOLIC ACID [Suspect]
     Active Substance: FOLIC ACID
     Route: 065
  26. FOLIC ACID [Suspect]
     Active Substance: FOLIC ACID
     Route: 048
  27. FOLIC ACID [Suspect]
     Active Substance: FOLIC ACID
     Route: 048
  28. FOSAMAX [Suspect]
     Active Substance: ALENDRONATE SODIUM
     Indication: Rheumatoid arthritis
     Route: 065
  29. FOSAMAX [Suspect]
     Active Substance: ALENDRONATE SODIUM
     Route: 048
  30. GOLD SODIUM THIOMALATE [Suspect]
     Active Substance: GOLD SODIUM THIOMALATE
     Indication: Product used for unknown indication
     Route: 065
  31. GOLIMUMAB [Suspect]
     Active Substance: GOLIMUMAB
     Indication: Rheumatoid arthritis
     Route: 058
  32. GOLIMUMAB [Suspect]
     Active Substance: GOLIMUMAB
     Indication: Prostatic specific antigen
     Route: 065
  33. HUMIRA [Suspect]
     Active Substance: ADALIMUMAB
     Indication: Rheumatoid arthritis
     Route: 065
  34. HUMIRA [Suspect]
     Active Substance: ADALIMUMAB
  35. HYDROXYCHLOROQUINE [Suspect]
     Active Substance: HYDROXYCHLOROQUINE
     Indication: Rheumatoid arthritis
     Route: 048
  36. HYDROXYCHLOROQUINE [Suspect]
     Active Substance: HYDROXYCHLOROQUINE
     Route: 065
  37. HYDROXYCHLOROQUINE [Suspect]
     Active Substance: HYDROXYCHLOROQUINE
     Route: 065
  38. HYDROXYCHLOROQUINE [Suspect]
     Active Substance: HYDROXYCHLOROQUINE
     Route: 065
  39. HYDROXYCHLOROQUINE [Suspect]
     Active Substance: HYDROXYCHLOROQUINE
     Route: 058
  40. HYDROXYCHLOROQUINE [Suspect]
     Active Substance: HYDROXYCHLOROQUINE
     Route: 048
  41. HYDROXYCHLOROQUINE [Suspect]
     Active Substance: HYDROXYCHLOROQUINE
     Route: 048
  42. HYDROXYCHLOROQUINE SULFATE [Suspect]
     Active Substance: HYDROXYCHLOROQUINE SULFATE
     Indication: Rheumatoid arthritis
     Route: 065
  43. INFLIXIMAB [Suspect]
     Active Substance: INFLIXIMAB
     Indication: Rheumatoid arthritis
     Route: 040
  44. ISOPROPYL ALCOHOL [Suspect]
     Active Substance: ISOPROPYL ALCOHOL
     Indication: Product used for unknown indication
     Route: 065
  45. LAMICTAL [Suspect]
     Active Substance: LAMOTRIGINE
     Indication: Product used for unknown indication
     Route: 048
  46. LAMICTAL [Suspect]
     Active Substance: LAMOTRIGINE
     Route: 048
  47. CLIOQUINOL\FLUMETHASONE [Suspect]
     Active Substance: CLIOQUINOL\FLUMETHASONE
     Indication: Product used for unknown indication
     Route: 065
  48. MAGNESIUM CITRATE [Suspect]
     Active Substance: MAGNESIUM CITRATE
     Indication: Product used for unknown indication
     Route: 065
  49. DIATRIZOATE MEGLUMINE [Suspect]
     Active Substance: DIATRIZOATE MEGLUMINE
     Indication: Product used for unknown indication
     Route: 040
  50. METFORMIN [Suspect]
     Active Substance: METFORMIN HYDROCHLORIDE
     Indication: Product used for unknown indication
     Route: 040
  51. METHOTREXATE SODIUM [Suspect]
     Active Substance: METHOTREXATE SODIUM
     Indication: Rheumatoid arthritis
     Route: 065
  52. METHOTREXATE SODIUM [Suspect]
     Active Substance: METHOTREXATE SODIUM
     Route: 048
  53. METHOTREXATE SODIUM [Suspect]
     Active Substance: METHOTREXATE SODIUM
     Route: 048
  54. METHOTREXATE SODIUM [Suspect]
     Active Substance: METHOTREXATE SODIUM
     Route: 048
  55. METHOTREXATE SODIUM [Suspect]
     Active Substance: METHOTREXATE SODIUM
     Route: 048
  56. METHOTREXATE SODIUM [Suspect]
     Active Substance: METHOTREXATE SODIUM
     Route: 065
  57. METHOTREXATE SODIUM [Suspect]
     Active Substance: METHOTREXATE SODIUM
     Route: 048
  58. METHOTREXATE SODIUM [Suspect]
     Active Substance: METHOTREXATE SODIUM
     Route: 058
  59. METHYLPREDNISOLONE SODIUM SUCCINATE [Suspect]
     Active Substance: METHYLPREDNISOLONE SODIUM SUCCINATE
     Indication: Product used for unknown indication
     Route: 065
  60. METHYLPREDNISOLONE SODIUM SUCCINATE [Suspect]
     Active Substance: METHYLPREDNISOLONE SODIUM SUCCINATE
     Route: 065
  61. MINOCYCLINE [Suspect]
     Active Substance: MINOCYCLINE HYDROCHLORIDE
     Indication: Rheumatoid arthritis
     Route: 065
  62. MINOCYCLINE [Suspect]
     Active Substance: MINOCYCLINE HYDROCHLORIDE
     Route: 065
  63. MYOCHRYSINE [Suspect]
     Active Substance: GOLD SODIUM THIOMALATE
     Indication: Rheumatoid arthritis
     Route: 030
  64. MYRBETRIQ [Suspect]
     Active Substance: MIRABEGRON
     Indication: Product used for unknown indication
     Route: 065
  65. MYRBETRIQ [Suspect]
     Active Substance: MIRABEGRON
     Route: 065
  66. NAPROXEN [Suspect]
     Active Substance: NAPROXEN
     Indication: Rheumatoid arthritis
     Route: 065
  67. NAPROXEN [Suspect]
     Active Substance: NAPROXEN
     Route: 065
  68. NAPROXEN [Suspect]
     Active Substance: NAPROXEN
     Route: 065
  69. NEOMYCIN SULFATE [Suspect]
     Active Substance: NEOMYCIN SULFATE
     Indication: Rheumatoid arthritis
     Route: 065
  70. NUCALA [Suspect]
     Active Substance: MEPOLIZUMAB
     Indication: Product used for unknown indication
     Route: 065
  71. ORENCIA [Suspect]
     Active Substance: ABATACEPT
     Indication: Rheumatoid arthritis
     Route: 065
  72. ORENCIA [Suspect]
     Active Substance: ABATACEPT
     Route: 040
  73. ORENCIA [Suspect]
     Active Substance: ABATACEPT
     Route: 058
  74. ORENCIA [Suspect]
     Active Substance: ABATACEPT
     Route: 065
  75. ORENCIA [Suspect]
     Active Substance: ABATACEPT
     Route: 058
  76. ORENCIA [Suspect]
     Active Substance: ABATACEPT
     Route: 065
  77. ORENCIA [Suspect]
     Active Substance: ABATACEPT
     Route: 065
  78. ORENCIA [Suspect]
     Active Substance: ABATACEPT
     Route: 040
  79. ORENCIA [Suspect]
     Active Substance: ABATACEPT
     Route: 065
  80. OXYCODONE [Suspect]
     Active Substance: OXYCODONE
     Indication: Product used for unknown indication
     Route: 065
  81. OXYCODONE TEREPHTHALATE [Suspect]
     Active Substance: OXYCODONE TEREPHTHALATE
     Indication: Product used for unknown indication
     Route: 065
  82. PERIOGARD [Suspect]
     Active Substance: CHLORHEXIDINE GLUCONATE
     Indication: Product used for unknown indication
     Route: 065
  83. PHTHALYLSULFATHIAZOLE [Suspect]
     Active Substance: PHTHALYLSULFATHIAZOLE
     Indication: Rheumatoid arthritis
     Route: 048
  84. PHTHALYLSULFATHIAZOLE [Suspect]
     Active Substance: PHTHALYLSULFATHIAZOLE
     Route: 058
  85. PHTHALYLSULFATHIAZOLE [Suspect]
     Active Substance: PHTHALYLSULFATHIAZOLE
     Route: 040
  86. PHTHALYLSULFATHIAZOLE [Suspect]
     Active Substance: PHTHALYLSULFATHIAZOLE
     Route: 048
  87. POVIDONE-IODINE [Suspect]
     Active Substance: POVIDONE-IODINE
     Indication: Product used for unknown indication
     Route: 065
  88. RAMIPRIL [Suspect]
     Active Substance: RAMIPRIL
     Indication: Rheumatoid arthritis
     Route: 065
  89. RAMIPRIL [Suspect]
     Active Substance: RAMIPRIL
     Route: 016
  90. RAMIPRIL [Suspect]
     Active Substance: RAMIPRIL
     Route: 040
  91. RANITIDINE [Suspect]
     Active Substance: RANITIDINE
     Indication: Product used for unknown indication
     Route: 065
  92. CETIRIZINE HYDROCHLORIDE\PSEUDOEPHEDRINE HYDROCHLORIDE [Suspect]
     Active Substance: CETIRIZINE HYDROCHLORIDE\PSEUDOEPHEDRINE HYDROCHLORIDE
     Indication: Rheumatoid arthritis
     Route: 065
  93. CETIRIZINE HYDROCHLORIDE\PSEUDOEPHEDRINE HYDROCHLORIDE [Suspect]
     Active Substance: CETIRIZINE HYDROCHLORIDE\PSEUDOEPHEDRINE HYDROCHLORIDE
     Route: 065
  94. CETIRIZINE HYDROCHLORIDE\PSEUDOEPHEDRINE HYDROCHLORIDE [Suspect]
     Active Substance: CETIRIZINE HYDROCHLORIDE\PSEUDOEPHEDRINE HYDROCHLORIDE
     Route: 065
  95. REMICADE [Suspect]
     Active Substance: INFLIXIMAB
     Indication: Rheumatoid arthritis
     Route: 040
  96. REMICADE [Suspect]
     Active Substance: INFLIXIMAB
     Route: 040
  97. REMICADE [Suspect]
     Active Substance: INFLIXIMAB
     Route: 040
  98. REMICADE [Suspect]
     Active Substance: INFLIXIMAB
     Route: 040
  99. RIBOFLAVIN [Suspect]
     Active Substance: RIBOFLAVIN
     Indication: Product used for unknown indication
     Route: 065
  100. RITUXIMAB [Suspect]
     Active Substance: RITUXIMAB
     Indication: Rheumatoid arthritis
     Route: 065
  101. RITUXIMAB [Suspect]
     Active Substance: RITUXIMAB
     Route: 058
  102. RITUXIMAB [Suspect]
     Active Substance: RITUXIMAB
     Route: 043
  103. RITUXIMAB [Suspect]
     Active Substance: RITUXIMAB
     Route: 040
  104. RITUXIMAB [Suspect]
     Active Substance: RITUXIMAB
     Route: 065
  105. RITUXIMAB [Suspect]
     Active Substance: RITUXIMAB
     Route: 065
  106. RITUXIMAB [Suspect]
     Active Substance: RITUXIMAB
     Route: 040
  107. SULFASALAZINE [Suspect]
     Active Substance: SULFASALAZINE
     Indication: Rheumatoid arthritis
     Route: 048
  108. SULFASALAZINE [Suspect]
     Active Substance: SULFASALAZINE
     Route: 058
  109. SULFASALAZINE [Suspect]
     Active Substance: SULFASALAZINE
     Route: 065
  110. SULFASALAZINE [Suspect]
     Active Substance: SULFASALAZINE
     Route: 048
  111. SULFASALAZINE [Suspect]
     Active Substance: SULFASALAZINE
     Route: 058
  112. SULFASALAZINE [Suspect]
     Active Substance: SULFASALAZINE
     Route: 065
  113. SULFASALAZINE [Suspect]
     Active Substance: SULFASALAZINE
     Route: 048
  114. SULFASALAZINE [Suspect]
     Active Substance: SULFASALAZINE
     Route: 048
  115. SULFASALAZINE [Suspect]
     Active Substance: SULFASALAZINE
     Route: 048
  116. SULFASALAZINE [Suspect]
     Active Substance: SULFASALAZINE
     Route: 065
  117. SULFASALAZINE [Suspect]
     Active Substance: SULFASALAZINE
     Route: 048
  118. SULFASALAZINE [Suspect]
     Active Substance: SULFASALAZINE
  119. SIMPONI [Suspect]
     Active Substance: GOLIMUMAB
     Indication: Rheumatoid arthritis
     Route: 058
  120. SIMPONI [Suspect]
     Active Substance: GOLIMUMAB
     Route: 058
  121. SIMPONI [Suspect]
     Active Substance: GOLIMUMAB
  122. SIRUKUMAB [Suspect]
     Active Substance: SIRUKUMAB
     Indication: Product used for unknown indication
     Route: 065
  123. GOLD SODIUM THIOMALATE [Suspect]
     Active Substance: GOLD SODIUM THIOMALATE
     Indication: Product used for unknown indication
     Route: 048
  124. SULFAMETHOXAZOLE [Suspect]
     Active Substance: SULFAMETHOXAZOLE
     Indication: Product used for unknown indication
     Route: 065
  125. TOCILIZUMAB [Suspect]
     Active Substance: TOCILIZUMAB
     Indication: Rheumatoid arthritis
     Route: 065
  126. TOCILIZUMAB [Suspect]
     Active Substance: TOCILIZUMAB
     Route: 065
  127. TOCILIZUMAB [Suspect]
     Active Substance: TOCILIZUMAB
     Route: 065
  128. TOCILIZUMAB [Suspect]
     Active Substance: TOCILIZUMAB
     Route: 040
  129. TOCILIZUMAB [Suspect]
     Active Substance: TOCILIZUMAB
     Route: 058
  130. TOCILIZUMAB [Suspect]
     Active Substance: TOCILIZUMAB
     Route: 040
  131. TOCILIZUMAB [Suspect]
     Active Substance: TOCILIZUMAB
     Route: 058
  132. TOCILIZUMAB [Suspect]
     Active Substance: TOCILIZUMAB
     Route: 048
  133. TOPIRAMATE [Suspect]
     Active Substance: TOPIRAMATE
     Indication: Migraine
     Route: 065
  134. TOPIRAMATE [Suspect]
     Active Substance: TOPIRAMATE
     Route: 065
  135. TRAMADOL HYDROCHLORIDE [Suspect]
     Active Substance: TRAMADOL HYDROCHLORIDE
     Indication: Product used for unknown indication
     Route: 065
  136. TRIAMCINOLONE ACETONIDE [Suspect]
     Active Substance: TRIAMCINOLONE ACETONIDE
     Indication: Rheumatoid arthritis
     Route: 065
  137. VITAMIN A [Suspect]
     Active Substance: VITAMIN A
     Indication: Product used for unknown indication
     Route: 065
  138. XELJANZ [Suspect]
     Active Substance: TOFACITINIB CITRATE
     Indication: Rheumatoid arthritis
     Route: 048
  139. XELJANZ [Suspect]
     Active Substance: TOFACITINIB CITRATE
     Route: 048
  140. XELJANZ [Suspect]
     Active Substance: TOFACITINIB CITRATE
     Route: 065
  141. XELJANZ [Suspect]
     Active Substance: TOFACITINIB CITRATE
     Route: 048
  142. PSEUDOEPHEDRINE HYDROCHLORIDE [Suspect]
     Active Substance: PSEUDOEPHEDRINE HYDROCHLORIDE
     Indication: Rheumatoid arthritis
     Route: 065
  143. PSEUDOEPHEDRINE HYDROCHLORIDE [Suspect]
     Active Substance: PSEUDOEPHEDRINE HYDROCHLORIDE
     Route: 065
  144. PSEUDOEPHEDRINE HYDROCHLORIDE [Suspect]
     Active Substance: PSEUDOEPHEDRINE HYDROCHLORIDE
     Route: 065
  145. ADALIMUMAB [Suspect]
     Active Substance: ADALIMUMAB
     Indication: Rheumatoid arthritis
     Route: 065
  146. ADALIMUMAB [Suspect]
     Active Substance: ADALIMUMAB
     Route: 058
  147. AIMOVIG [Suspect]
     Active Substance: ERENUMAB-AOOE
     Indication: Migraine
     Route: 065
  148. LEFLUNOMIDE [Suspect]
     Active Substance: LEFLUNOMIDE
     Indication: Rheumatoid arthritis
     Route: 065
  149. LEFLUNOMIDE [Suspect]
     Active Substance: LEFLUNOMIDE
     Route: 048
  150. LEFLUNOMIDE [Suspect]
     Active Substance: LEFLUNOMIDE
     Route: 065
  151. LEFLUNOMIDE [Suspect]
     Active Substance: LEFLUNOMIDE
     Route: 048
  152. LEFLUNOMIDE [Suspect]
     Active Substance: LEFLUNOMIDE
     Route: 065
  153. LEFLUNOMIDE [Suspect]
     Active Substance: LEFLUNOMIDE
     Route: 048
  154. LEFLUNOMIDE [Suspect]
     Active Substance: LEFLUNOMIDE
     Route: 048
  155. LEFLUNOMIDE [Suspect]
     Active Substance: LEFLUNOMIDE
     Route: 065
  156. PREDNISONE [Suspect]
     Active Substance: PREDNISONE
     Indication: Rheumatoid arthritis
     Route: 048
  157. PREDNISONE [Suspect]
     Active Substance: PREDNISONE
     Route: 048
  158. PREDNISONE [Suspect]
     Active Substance: PREDNISONE
     Route: 065
  159. PREDNISONE [Suspect]
     Active Substance: PREDNISONE
     Route: 048
  160. PREDNISONE [Suspect]
     Active Substance: PREDNISONE
     Route: 065
  161. PREDNISONE [Suspect]
     Active Substance: PREDNISONE
     Route: 048
  162. PREDNISONE [Suspect]
     Active Substance: PREDNISONE
     Route: 065
  163. PREDNISONE [Suspect]
     Active Substance: PREDNISONE
     Route: 065
  164. PREDNISONE [Suspect]
     Active Substance: PREDNISONE
     Route: 048
  165. PREDNISONE [Suspect]
     Active Substance: PREDNISONE
     Route: 065
  166. APREMILAST [Suspect]
     Active Substance: APREMILAST
     Indication: Rheumatoid arthritis
     Route: 065
  167. ARAVA [Suspect]
     Active Substance: LEFLUNOMIDE
     Indication: Rheumatoid arthritis
     Route: 048
  168. ARAVA [Suspect]
     Active Substance: LEFLUNOMIDE
     Route: 048
  169. ARAVA [Suspect]
     Active Substance: LEFLUNOMIDE
     Route: 048
  170. ATOMOXETINE HYDROCHLORIDE [Suspect]
     Active Substance: ATOMOXETINE HYDROCHLORIDE
     Indication: Migraine
     Route: 065
  171. AZATHIOPRINE SODIUM [Suspect]
     Active Substance: AZATHIOPRINE SODIUM
     Indication: Product used for unknown indication
     Route: 065
  172. BENFOTIAMINE [Suspect]
     Active Substance: BENFOTIAMINE
     Indication: Product used for unknown indication
     Route: 065
  173. BERINERT [Suspect]
     Active Substance: HUMAN C1-ESTERASE INHIBITOR
     Indication: Product used for unknown indication
     Route: 065
  174. BOTULINUM TOXIN TYPE A [Suspect]
     Active Substance: BOTULINUM TOXIN TYPE A
     Indication: Product used for unknown indication
     Route: 065
  175. BUTRANS [Suspect]
     Active Substance: BUPRENORPHINE
     Indication: Product used for unknown indication
     Route: 065
  176. CALCIUM ASCORBATE [Suspect]
     Active Substance: CALCIUM ASCORBATE
     Indication: Product used for unknown indication
     Route: 065
  177. CALCIUM GLUBIONATE [Suspect]
     Active Substance: CALCIUM GLUBIONATE
     Indication: Product used for unknown indication
     Route: 065
  178. CANDESARTAN [Suspect]
     Active Substance: CANDESARTAN
     Indication: Migraine
     Route: 065
  179. CELEBREX [Suspect]
     Active Substance: CELECOXIB
     Indication: Product used for unknown indication
     Route: 048
  180. CELEBREX [Suspect]
     Active Substance: CELECOXIB
     Route: 065
  181. CIMZIA [Suspect]
     Active Substance: CERTOLIZUMAB PEGOL
     Indication: Rheumatoid arthritis
     Route: 058
  182. CIMZIA [Suspect]
     Active Substance: CERTOLIZUMAB PEGOL
     Route: 058
  183. CIMZIA [Suspect]
     Active Substance: CERTOLIZUMAB PEGOL
     Route: 058
  184. CORTISONE ACETATE [Suspect]
     Active Substance: CORTISONE ACETATE
     Indication: Rheumatoid arthritis
     Route: 065
  185. CORTISONE ACETATE [Suspect]
     Active Substance: CORTISONE ACETATE
     Route: 065
  186. COSENTYX [Suspect]
     Active Substance: SECUKINUMAB
     Indication: Psoriatic arthropathy
     Route: 065
  187. DESOGESTREL\ETHINYL ESTRADIOL [Suspect]
     Active Substance: DESOGESTREL\ETHINYL ESTRADIOL
     Indication: Product used for unknown indication
     Route: 065
  188. DESOXIMETASONE [Suspect]
     Active Substance: DESOXIMETASONE
     Indication: Rheumatoid arthritis
     Route: 058
  189. DESOXIMETASONE [Suspect]
     Active Substance: DESOXIMETASONE
     Route: 048
  190. DESOXIMETASONE [Suspect]
     Active Substance: DESOXIMETASONE
     Route: 065
  191. DESOXIMETASONE [Suspect]
     Active Substance: DESOXIMETASONE
     Route: 048
  192. DESOXIMETASONE [Suspect]
     Active Substance: DESOXIMETASONE
     Route: 048
  193. DESOXIMETASONE [Suspect]
     Active Substance: DESOXIMETASONE
     Route: 058
  194. DESOXIMETASONE [Suspect]
     Active Substance: DESOXIMETASONE
     Route: 048
  195. DOMPERIDONE MALEATE [Suspect]
     Active Substance: DOMPERIDONE MALEATE
     Indication: Product used for unknown indication
     Route: 065
  196. ENBREL [Suspect]
     Active Substance: ETANERCEPT
     Indication: Rheumatoid arthritis
     Route: 058
  197. ENBREL [Suspect]
     Active Substance: ETANERCEPT
     Route: 058
  198. ENBREL [Suspect]
     Active Substance: ETANERCEPT
     Route: 065
  199. ENBREL [Suspect]
     Active Substance: ETANERCEPT
     Route: 065
  200. ENBREL [Suspect]
     Active Substance: ETANERCEPT
     Route: 058
  201. ENBREL [Suspect]
     Active Substance: ETANERCEPT
     Route: 058
  202. ERELZI [Suspect]
     Active Substance: ETANERCEPT-SZZS
     Indication: Rheumatoid arthritis
     Route: 058
  203. ERGOCALCIFEROL [Suspect]
     Active Substance: ERGOCALCIFEROL
     Indication: Product used for unknown indication
     Route: 065
  204. TRUXIMA [Suspect]
     Active Substance: RITUXIMAB-ABBS
     Indication: Rheumatoid arthritis
     Route: 065
  205. TRUXIMA [Suspect]
     Active Substance: RITUXIMAB-ABBS
     Route: 065
  206. TRUXIMA [Suspect]
     Active Substance: RITUXIMAB-ABBS
     Route: 058
  207. TRUXIMA [Suspect]
     Active Substance: RITUXIMAB-ABBS
     Route: 043
  208. TRUXIMA [Suspect]
     Active Substance: RITUXIMAB-ABBS
  209. TRUXIMA [Suspect]
     Active Substance: RITUXIMAB-ABBS
     Route: 065
  210. TRUXIMA [Suspect]
     Active Substance: RITUXIMAB-ABBS
     Route: 040
  211. TRUXIMA [Suspect]
     Active Substance: RITUXIMAB-ABBS
     Route: 040

REACTIONS (35)
  - Systemic lupus erythematosus [Fatal]
  - Confusional state [Fatal]
  - C-reactive protein abnormal [Fatal]
  - C-reactive protein increased [Fatal]
  - Contraindicated product administered [Fatal]
  - Drug hypersensitivity [Fatal]
  - Drug ineffective [Fatal]
  - Dyspnoea [Fatal]
  - Ill-defined disorder [Fatal]
  - Infusion related reaction [Fatal]
  - Injection site reaction [Fatal]
  - Nausea [Fatal]
  - Off label use [Fatal]
  - Onychomadesis [Fatal]
  - Onychomycosis [Fatal]
  - Pain [Fatal]
  - Pemphigus [Fatal]
  - Pericarditis [Fatal]
  - Product use in unapproved indication [Fatal]
  - Product use issue [Fatal]
  - Psoriatic arthropathy [Fatal]
  - Rash [Fatal]
  - Rheumatic fever [Fatal]
  - Rheumatoid arthritis [Fatal]
  - Sleep disorder [Fatal]
  - Swelling [Fatal]
  - Synovitis [Fatal]
  - Therapeutic product effect decreased [Fatal]
  - Therapeutic product effect incomplete [Fatal]
  - Treatment failure [Fatal]
  - Type 2 diabetes mellitus [Fatal]
  - Wound [Fatal]
  - Intentional product use issue [Fatal]
  - Overdose [Fatal]
  - Underdose [Fatal]
